FAERS Safety Report 5886437-2 (Version None)
Quarter: 2008Q3

REPORT INFORMATION
  Report Type: 
  Country: None (occurrence: None)
  Receive Date: 20080917
  Receipt Date: 20080911
  Transmission Date: 20090109
  Serious: Yes (Other)
  Sender: FDA-Public Use
  Company Number: GB-AVENTIS-200818695GDDC

PATIENT
  Age: 50 Year
  Sex: Male

DRUGS (3)
  1. METRONIDAZOLE [Suspect]
     Indication: INFECTION
     Route: 048
     Dates: start: 20080822, end: 20080829
  2. CLARITHROMYCIN [Concomitant]
     Indication: INFECTION
     Route: 048
     Dates: start: 20080812, end: 20080822
  3. OMEPRAZOLE [Concomitant]
     Route: 048
     Dates: start: 20080519

REACTIONS (2)
  - ANGIOEDEMA [None]
  - DYSPNOEA [None]
